FAERS Safety Report 9440832 (Version 1)
Quarter: 2013Q3

REPORT INFORMATION
  Report Type: Spontaneous
  Country: IT (occurrence: IT)
  Receive Date: 20130805
  Receipt Date: 20130805
  Transmission Date: 20140515
  Serious: Yes (Other)
  Sender: FDA-Public Use
  Company Number: IT-PFIZER INC-2013223637

PATIENT
  Age: 78 Year
  Sex: Male

DRUGS (5)
  1. ATORVASTATIN CALCIUM [Suspect]
     Indication: MYOCARDIAL ISCHAEMIA
     Dosage: 40 MG, DAILY
     Route: 048
     Dates: start: 20130128, end: 20130513
  2. CARDIOASPIRIN [Concomitant]
     Dosage: 100 MG, UNK
  3. RANITIDINE [Concomitant]
     Dosage: 300 MG, DAILY
  4. LOSARTAN [Concomitant]
     Dosage: 12.5 MG, DAILY
  5. BISOPROLOL FUMARATE [Concomitant]
     Dosage: 2.5 MG, DAILY

REACTIONS (3)
  - Blood creatine phosphokinase increased [Recovered/Resolved]
  - Blood creatine phosphokinase MB increased [Recovered/Resolved]
  - Myalgia [Recovered/Resolved]
